FAERS Safety Report 4929917-6 (Version None)
Quarter: 2006Q1

REPORT INFORMATION
  Report Type: 
  Country: None (occurrence: None)
  Receive Date: 20060301
  Receipt Date: 20051207
  Transmission Date: 20060701
  Serious: Yes (Other)
  Sender: FDA-Public Use
  Company Number: US-MERCK-0512USA01379

PATIENT
  Sex: Female
  Weight: 86 kg

DRUGS (15)
  1. VIOXX [Suspect]
     Route: 048
     Dates: start: 20020121, end: 20020801
  2. VIOXX [Suspect]
     Route: 048
     Dates: start: 20020901, end: 20030101
  3. CENTRUM [Concomitant]
     Route: 065
  4. CALCIUM (UNSPECIFIED) [Concomitant]
     Route: 065
  5. AMITRIPTYLINE HYDROCHLORIDE [Concomitant]
     Route: 065
  6. VALIUM [Concomitant]
     Route: 065
  7. DOXAZOSIN MESYLATE [Concomitant]
     Route: 065
  8. PLAVIX [Concomitant]
     Route: 065
  9. ASPIRIN [Concomitant]
     Route: 065
  10. EVISTA [Concomitant]
     Route: 065
  11. COZAAR [Concomitant]
     Route: 065
  12. HYDROCHLOROTHIAZIDE [Concomitant]
     Route: 065
  13. [THERAPY UNSPECIFIED] [Concomitant]
     Route: 065
  14. VITAMIN E [Concomitant]
     Route: 065
  15. FIBERCON [Concomitant]
     Route: 065

REACTIONS (2)
  - ARRHYTHMIA [None]
  - MYOCARDIAL INFARCTION [None]
